FAERS Safety Report 13920743 (Version 11)
Quarter: 2019Q4

REPORT INFORMATION
  Report Type: Spontaneous
  Country: US (occurrence: US)
  Receive Date: 20170830
  Receipt Date: 20191029
  Transmission Date: 20200122
  Serious: Yes (Other)
  Sender: FDA-Public Use
  Company Number: US-PFIZER INC-2017367629

PATIENT
  Age: 68 Year
  Sex: Male
  Weight: 126.98 kg

DRUGS (19)
  1. PROZAC [Concomitant]
     Active Substance: FLUOXETINE HYDROCHLORIDE
     Dosage: UNK
  2. SUTENT [Suspect]
     Active Substance: SUNITINIB MALATE
     Indication: GASTROINTESTINAL CARCINOMA
     Dosage: UNK
     Dates: start: 20171002
  3. VITAMIN D [Concomitant]
     Active Substance: VITAMIN D NOS
     Dosage: UNK
  4. LISINOPRIL. [Concomitant]
     Active Substance: LISINOPRIL
     Dosage: UNK
  5. TRIAMCINOLONE [Concomitant]
     Active Substance: TRIAMCINOLONE
     Dosage: UNK
  6. SUTENT [Suspect]
     Active Substance: SUNITINIB MALATE
     Indication: METASTATIC RENAL CELL CARCINOMA
     Dosage: 50 MG, CYCLIC (DAILY FOR 28 DAYS ON AND 14 DAYS OFF, 2 WEEKS ON/1 WEEK OFF)
     Dates: start: 20170816
  7. SUTENT [Suspect]
     Active Substance: SUNITINIB MALATE
     Dosage: 12.5 MG, UNK
  8. ACICLOVIR [Concomitant]
     Active Substance: ACYCLOVIR
     Dosage: UNK
  9. BABY ASPIRIN [Concomitant]
     Active Substance: ASPIRIN
     Dosage: UNK
  10. PROSCAR [Concomitant]
     Active Substance: FINASTERIDE
     Dosage: UNK
  11. FISH OIL [Concomitant]
     Active Substance: FISH OIL
     Dosage: UNK
  12. HYDROCODONE BITARTRATE AND ACETAMINOPHEN [Concomitant]
     Active Substance: ACETAMINOPHEN\HYDROCODONE BITARTRATE
     Dosage: UNK
  13. DOXAZOSIN [Concomitant]
     Active Substance: DOXAZOSIN MESYLATE
     Dosage: UNK
  14. METOPROLOL TARTRATE. [Concomitant]
     Active Substance: METOPROLOL TARTRATE
     Indication: HYPERTENSION
     Dosage: UNK
  15. CALCIUM [Concomitant]
     Active Substance: CALCIUM
     Dosage: UNK
  16. METOPROLOL. [Concomitant]
     Active Substance: METOPROLOL
     Dosage: UNK
     Dates: end: 20170907
  17. BYSTOLIC [Concomitant]
     Active Substance: NEBIVOLOL HYDROCHLORIDE
     Indication: HYPERTENSION
     Dosage: UNK
  18. LEVOTHYROXINE. [Concomitant]
     Active Substance: LEVOTHYROXINE
     Dosage: UNK
  19. ZINC OXIDE. [Concomitant]
     Active Substance: ZINC OXIDE
     Indication: DECUBITUS ULCER
     Dosage: UNK
     Route: 061

REACTIONS (49)
  - Skin disorder [Unknown]
  - Oral pain [Unknown]
  - Diarrhoea [Unknown]
  - Yellow skin [Recovered/Resolved]
  - Erythema [Unknown]
  - Blood pressure inadequately controlled [Unknown]
  - Stomatitis [Unknown]
  - Fatigue [Unknown]
  - Musculoskeletal pain [Unknown]
  - Hair texture abnormal [Unknown]
  - Thyroid function test abnormal [Unknown]
  - Decubitus ulcer [Unknown]
  - Toothache [Unknown]
  - Pain in extremity [Unknown]
  - Hypotension [Unknown]
  - Ageusia [Unknown]
  - Weight decreased [Unknown]
  - Impaired quality of life [Unknown]
  - Dyspnoea [Unknown]
  - Taste disorder [Unknown]
  - Skin lesion [Unknown]
  - Affect lability [Unknown]
  - Gastric disorder [Unknown]
  - Nail discolouration [Unknown]
  - Alopecia [Unknown]
  - Dry skin [Unknown]
  - Tumour pain [Not Recovered/Not Resolved]
  - Anxiety [Unknown]
  - Loss of personal independence in daily activities [Unknown]
  - Gait disturbance [Unknown]
  - Decreased appetite [Unknown]
  - Insomnia [Unknown]
  - Dry mouth [Unknown]
  - Dyspnoea exertional [Unknown]
  - Haemorrhage [Recovering/Resolving]
  - Lip pain [Unknown]
  - Gingival pain [Unknown]
  - Wound [Unknown]
  - Asthenia [Unknown]
  - Swelling [Unknown]
  - Hypertension [Unknown]
  - Pain [Unknown]
  - Blister [Unknown]
  - Hyperaesthesia [Unknown]
  - Impaired healing [Unknown]
  - Neoplasm progression [Recovering/Resolving]
  - Nervousness [Unknown]
  - Hyperaesthesia teeth [Unknown]
  - Gait inability [Unknown]
